FAERS Safety Report 6203494-4 (Version None)
Quarter: 2009Q2

REPORT INFORMATION
  Report Type: 
  Country: None (occurrence: None)
  Receive Date: 20090521
  Receipt Date: 20090515
  Transmission Date: 20091009
  Serious: Yes (Hospitalization)
  Sender: FDA-Public Use
  Company Number: 2009005218

PATIENT
  Sex: Male

DRUGS (2)
  1. TREANDA [Suspect]
     Indication: ACUTE LEUKAEMIA
     Dosage: 100 MG/M2 (50 MG/M2,2 IN 1 D),INTRAVENOUS
     Route: 042
     Dates: start: 20090303, end: 20090306
  2. TREANDA [Suspect]
     Indication: MYELODYSPLASTIC SYNDROME
     Dosage: 100 MG/M2 (50 MG/M2,2 IN 1 D),INTRAVENOUS
     Route: 042
     Dates: start: 20090303, end: 20090306

REACTIONS (5)
  - DEHYDRATION [None]
  - EJECTION FRACTION DECREASED [None]
  - MUSCULAR WEAKNESS [None]
  - PNEUMONIA FUNGAL [None]
  - SINUS TACHYCARDIA [None]
